FAERS Safety Report 6711692-6 (Version None)
Quarter: 2010Q2

REPORT INFORMATION
  Report Type: 
  Country: None (occurrence: None)
  Receive Date: 20100505
  Receipt Date: 20100426
  Transmission Date: 20101027
  Serious: Yes (Hospitalization, Other)
  Sender: FDA-Public Use
  Company Number: AT-AMGEN-QUU408612

PATIENT
  Sex: Male
  Weight: 70 kg

DRUGS (9)
  1. ARANESP [Suspect]
     Indication: RENAL FAILURE CHRONIC
     Route: 058
     Dates: start: 20091201, end: 20100201
  2. APREDNISLON [Concomitant]
     Route: 048
  3. TACROLIMUS [Concomitant]
     Route: 048
  4. MYCOPHENOLATE MOFETIL [Concomitant]
     Route: 048
  5. TENORMIN [Concomitant]
     Route: 048
  6. ZIAC [Concomitant]
     Route: 048
  7. AMLODIPINE [Concomitant]
     Route: 048
  8. MOXONIDINE [Concomitant]
     Route: 048
  9. ROCALTROL [Concomitant]

REACTIONS (2)
  - CEREBELLAR INFARCTION [None]
  - CEREBRAL INFARCTION [None]
